FAERS Safety Report 4701225-8 (Version None)
Quarter: 2005Q2

REPORT INFORMATION
  Report Type: 
  Country: None (occurrence: None)
  Receive Date: 20050624
  Receipt Date: 20050615
  Transmission Date: 20051028
  Serious: Yes (Hospitalization, Other)
  Sender: FDA-Public Use
  Company Number: 2005081291

PATIENT
  Age: 76 Year
  Sex: Female
  Weight: 81.6475 kg

DRUGS (2)
  1. CELEBREX [Suspect]
     Indication: ARTHRALGIA
     Dosage: 200 MG (200 MG, 1 IN 1 D), ORAL
     Route: 048
     Dates: end: 20050101
  2. AMITRIPTYLINE (AMITRIPTYLINE) [Concomitant]

REACTIONS (11)
  - ARTHRALGIA [None]
  - ARTHRITIS [None]
  - CONDITION AGGRAVATED [None]
  - DRY SKIN [None]
  - ERYTHEMA [None]
  - HIP ARTHROPLASTY [None]
  - KNEE ARTHROPLASTY [None]
  - PRURITUS [None]
  - SKIN DISCOLOURATION [None]
  - SKIN DISORDER [None]
  - VERTIGO [None]
